FAERS Safety Report 16186238 (Version 1)
Quarter: 2019Q2

REPORT INFORMATION
  Report Type: Spontaneous
  Country: US (occurrence: US)
  Receive Date: 20190308
  Receipt Date: 20190308
  Transmission Date: 20190711
  Serious: Yes (Disabling)
  Sender: FDA-Public Use
  Company Number: None

PATIENT
  Age: 59 Year
  Sex: Female
  Weight: 38.56 kg

DRUGS (10)
  1. RELPAX [Concomitant]
     Active Substance: ELETRIPTAN HYDROBROMIDE
  2. INDERAL [Concomitant]
     Active Substance: PROPRANOLOL HYDROCHLORIDE
  3. VIT D [Concomitant]
     Active Substance: VITAMIN D NOS
  4. MAG [Concomitant]
  5. TORADOL [Concomitant]
     Active Substance: KETOROLAC TROMETHAMINE
  6. AJOVY [Suspect]
     Active Substance: FREMANEZUMAB-VFRM
     Indication: MIGRAINE
     Dosage: ?          QUANTITY:1 DF DOSAGE FORM;?
     Dates: start: 20190106, end: 20190204
  7. ATIVAN [Concomitant]
     Active Substance: LORAZEPAM
  8. CALC [Concomitant]
     Dates: start: 20190106, end: 20190204
  9. CLARITIN [Concomitant]
     Active Substance: LORATADINE
  10. TYLENOL WITH CODEINE [Concomitant]
     Active Substance: ACETAMINOPHEN\CODEINE PHOSPHATE

REACTIONS (7)
  - Arthralgia [None]
  - Headache [None]
  - Irritable bowel syndrome [None]
  - Abdominal symptom [None]
  - Fatigue [None]
  - Myalgia [None]
  - Drug ineffective [None]

NARRATIVE: CASE EVENT DATE: 20190108
